FAERS Safety Report 9478050 (Version 2)
Quarter: 2013Q3

REPORT INFORMATION
  Report Type: Report from Study
  Country: HU (occurrence: HU)
  Receive Date: 20130827
  Receipt Date: 20130827
  Transmission Date: 20140515
  Serious: Yes (Hospitalization)
  Sender: FDA-Public Use
  Company Number: PHHO2011HU04204

PATIENT
  Age: 57 Year
  Sex: Female
  Weight: 116 kg

DRUGS (9)
  1. PLACEBO [Suspect]
     Indication: CORONARY ARTERY DISEASE
     Dosage: UNK
     Route: 048
     Dates: start: 20101207, end: 20101213
  2. PLACEBO [Suspect]
     Dosage: UNK
     Route: 048
     Dates: start: 20101214
  3. ALISKIREN [Suspect]
     Indication: CORONARY ARTERY DISEASE
     Dosage: 150 MG, UNK
  4. ASPIRIN PROTECT [Concomitant]
     Indication: MYOCARDIAL ISCHAEMIA
     Dosage: 100 MG, QD
     Route: 048
     Dates: start: 2008
  5. MEFORAL [Concomitant]
     Indication: DIABETES MELLITUS
     Dosage: 1000 MG, BID
     Dates: start: 2008
  6. DIAPREL [Concomitant]
     Indication: DIABETES MELLITUS
     Dosage: 90 MG, QD
     Route: 048
     Dates: start: 201006
  7. TRITACE [Concomitant]
     Indication: HYPERTENSION
     Dosage: 5/25 MG, QD
     Route: 048
     Dates: start: 2008
  8. TENAXUM [Concomitant]
     Indication: HYPERTENSION
     Dosage: 1 MG, QD
     Route: 048
     Dates: start: 2008
  9. EUTHYROX [Concomitant]
     Indication: HYPOTHYROIDISM
     Dosage: 150 UG, QD
     Route: 048
     Dates: start: 2010

REACTIONS (2)
  - Metrorrhagia [Recovered/Resolved]
  - Uterine polyp [Recovered/Resolved]
